FAERS Safety Report 6312952-3 (Version None)
Quarter: 2009Q3

REPORT INFORMATION
  Report Type: 
  Country: None (occurrence: None)
  Receive Date: 20090818
  Receipt Date: 20090807
  Transmission Date: 20100115
  Serious: Yes (Other)
  Sender: FDA-Public Use
  Company Number: NL-AMGEN-US359737

PATIENT
  Age: 72 Year
  Sex: Female

DRUGS (15)
  1. ENBREL [Suspect]
     Indication: RHEUMATOID ARTHRITIS
     Route: 058
     Dates: start: 20090717, end: 20090805
  2. FOLIC ACID [Concomitant]
     Dosage: AS PRESCRIBED
  3. ISOSORBIDE DINITRATE [Concomitant]
  4. CINNARIZINE [Concomitant]
  5. LOPERAMIDE [Concomitant]
     Dosage: 2 MG, KNOWN USE
  6. PARACETAMOL [Concomitant]
     Dosage: 500 MG, 6 TIMES A DAY 1 TABLET WHEN NEEDED
  7. PREDNISOLONE [Concomitant]
  8. ACTONEL [Concomitant]
     Dosage: 35 MG, AS PRESCRIBED
  9. CALCICHEW-D3 [Concomitant]
     Dosage: 500MG/400IE 1 TIME A DAY 1 TABLET
  10. LOSEC MUPS [Concomitant]
     Dosage: 20 MG, KNOWN USE
  11. FLIXOTIDE [Concomitant]
     Dosage: 250 MG, KNOWN USAGE
  12. ASPIRIN [Concomitant]
  13. PROMOCARD [Concomitant]
     Dosage: 30 MG, KNOWN USAGE
  14. DICLOFENAC - SLOW RELEASE [Concomitant]
     Dosage: 75 MG, KNOWN USAGE
  15. FLUVOXAMINE MALEATE [Concomitant]

REACTIONS (3)
  - HYPERHIDROSIS [None]
  - MALAISE [None]
  - PALPITATIONS [None]
